FAERS Safety Report 19988868 (Version 1)
Quarter: 2021Q4

REPORT INFORMATION
  Report Type: Spontaneous
  Country: AT (occurrence: AT)
  Receive Date: 20211024
  Receipt Date: 20211024
  Transmission Date: 20220303
  Serious: Yes (Hospitalization, Other)
  Sender: FDA-Public Use
  Company Number: AT-NOVARTISPH-NVSC2021AT121943

PATIENT
  Age: 16 Year
  Sex: Female

DRUGS (2)
  1. LEVETIRACETAM [Suspect]
     Active Substance: LEVETIRACETAM
     Indication: Migraine with aura
     Dosage: 2 G, QD WITHIN 6 WEEKS,SLOWLY TITRATED
     Route: 065
  2. LEVETIRACETAM [Suspect]
     Active Substance: LEVETIRACETAM
     Dosage: 500 MG, QD
     Route: 065
     Dates: start: 201711, end: 201802

REACTIONS (3)
  - Status migrainosus [Recovering/Resolving]
  - Weight increased [Unknown]
  - Drug ineffective for unapproved indication [Unknown]
